FAERS Safety Report 4937550-5 (Version None)
Quarter: 2006Q1

REPORT INFORMATION
  Report Type: 
  Country: None (occurrence: None)
  Receive Date: 20060308
  Receipt Date: 20060308
  Transmission Date: 20060701
  Serious: No
  Sender: FDA-Public Use
  Company Number: None

PATIENT
  Sex: Female

DRUGS (1)
  1. ZEVALIN [Suspect]
     Indication: LYMPHOMA
     Dosage: ONE TIME INJECTION
     Dates: start: 20060104

REACTIONS (2)
  - ERYTHEMA [None]
  - SKIN EXFOLIATION [None]
